FAERS Safety Report 23320723 (Version 1)
Quarter: 2023Q4

REPORT INFORMATION
  Report Type: Spontaneous
  Country: US (occurrence: None)
  Receive Date: 20231220
  Receipt Date: 20231220
  Transmission Date: 20240109
  Serious: Yes (Hospitalization)
  Sender: FDA-Public Use
  Company Number: 2023A284615

PATIENT
  Sex: Female

DRUGS (1)
  1. FASLODEX [Suspect]
     Active Substance: FULVESTRANT
     Indication: Breast cancer metastatic
     Route: 030
     Dates: start: 20231108

REACTIONS (1)
  - Abdominal pain [Unknown]

NARRATIVE: CASE EVENT DATE: 20231211
